FAERS Safety Report 15259402 (Version 1)
Quarter: 2018Q3

REPORT INFORMATION
  Report Type: Spontaneous
  Country: US (occurrence: US)
  Receive Date: 20180719
  Receipt Date: 20180719
  Transmission Date: 20181010
  Serious: Yes (Hospitalization)
  Sender: FDA-Public Use
  Company Number: None

PATIENT
  Age: 43 Year
  Sex: Male
  Weight: 109.23 kg

DRUGS (1)
  1. LEVETIRACETAM. [Suspect]
     Active Substance: LEVETIRACETAM
     Indication: SEIZURE
     Route: 048
     Dates: start: 20180705, end: 20180718

REACTIONS (7)
  - Withdrawal syndrome [None]
  - Suicidal ideation [None]
  - Irritability [None]
  - Depression [None]
  - Mood altered [None]
  - Agitation [None]
  - Tremor [None]

NARRATIVE: CASE EVENT DATE: 20180718
